FAERS Safety Report 11248009 (Version 1)
Quarter: 2015Q3

REPORT INFORMATION
  Report Type: Spontaneous
  Country: US (occurrence: None)
  Receive Date: 20150707
  Receipt Date: 20150707
  Transmission Date: 20151125
  Serious: Yes (Other)
  Sender: FDA-Public Use
  Company Number: None

PATIENT
  Age: 48 Year
  Sex: Male
  Weight: 112.04 kg

DRUGS (3)
  1. CIPROFLOXACIN. [Suspect]
     Active Substance: CIPROFLOXACIN
     Indication: BACTERIAL INFECTION
     Route: 048
     Dates: start: 20150630, end: 20150704
  2. SIMPLY ONE NUTRITIONAL SUPPLEMENT [Concomitant]
  3. CIPROFLOXACIN. [Concomitant]
     Active Substance: CIPROFLOXACIN

REACTIONS (4)
  - Homicidal ideation [None]
  - Suicidal ideation [None]
  - Panic reaction [None]
  - Anxiety [None]

NARRATIVE: CASE EVENT DATE: 20150705
